FAERS Safety Report 4530308-0 (Version None)
Quarter: 2004Q4

REPORT INFORMATION
  Report Type: 
  Country: None (occurrence: None)
  Receive Date: 20041217
  Receipt Date: 20040901
  Transmission Date: 20050328
  Serious: Yes (Hospitalization)
  Sender: FDA-Public Use
  Company Number: FR-ROCHE-379235

PATIENT
  Age: 51 Year
  Sex: Female
  Weight: 78 kg

DRUGS (5)
  1. APRANAX [Suspect]
     Dosage: TAKEN PERIODICALLY
     Route: 048
     Dates: start: 20030615, end: 20040710
  2. NEXIUM [Suspect]
     Indication: DRUG USE FOR UNKNOWN INDICATION
     Dosage: TAKEN PERIODICALLY
     Route: 048
     Dates: start: 20030615, end: 20040710
  3. DEPAKINE CHRONO [Concomitant]
     Indication: EPILEPSY
     Route: 048
  4. PARACETAMOL [Concomitant]
     Route: 048
  5. URBANYL [Concomitant]
     Indication: EPILEPSY
     Dosage: 10 MG DOSAGE STRENGTH UP TO 13 JULY, 5 MG ON 14 JULY.
     Route: 048
     Dates: end: 20040714

REACTIONS (10)
  - AGITATION [None]
  - CARDIAC MURMUR [None]
  - CONFUSIONAL STATE [None]
  - CONVULSION [None]
  - DISORIENTATION [None]
  - DYSPNOEA [None]
  - HALLUCINATION [None]
  - INCOHERENT [None]
  - LOSS OF CONSCIOUSNESS [None]
  - MYDRIASIS [None]
